FAERS Safety Report 8259063 (Version 19)
Quarter: 2015Q1

REPORT INFORMATION
  Report Type: Report from Study
  Country: DE (occurrence: DE)
  Receive Date: 20111122
  Receipt Date: 20150327
  Transmission Date: 20150721
  Serious: Yes (Death, Hospitalization)
  Sender: FDA-Public Use
  Company Number: DE-ROCHE-1007014

PATIENT
  Age: 80 Year
  Sex: Female
  Weight: 59 kg

DRUGS (9)
  1. VEMURAFENIB [Suspect]
     Active Substance: VEMURAFENIB
     Indication: METASTATIC MALIGNANT MELANOMA
     Dosage: LAST DOSE PRIOR TO SAE: 19 OCTOBER 2011
     Route: 048
     Dates: start: 20110921, end: 20111019
  2. EUTHYROX [Concomitant]
     Active Substance: LEVOTHYROXINE SODIUM
     Dosage: 75 - 150 MCG DAILY
     Route: 065
     Dates: start: 2000
  3. PANTOPRAZOLE [Suspect]
     Active Substance: PANTOPRAZOLE SODIUM
     Indication: PRODUCT USED FOR UNKNOWN INDICATION
     Route: 065
     Dates: start: 201110
  4. NOVAMINSULFON [Concomitant]
     Active Substance: METAMIZOLE
     Route: 065
     Dates: start: 201110
  5. OXYCODON [Concomitant]
     Active Substance: OXYCODONE
  6. PROMETHAZINE [Suspect]
     Active Substance: PROMETHAZINE\PROMETHAZINE HYDROCHLORIDE
     Indication: PRODUCT USED FOR UNKNOWN INDICATION
     Route: 065
     Dates: start: 201110, end: 201110
  7. NOVALGIN [Suspect]
     Active Substance: METAMIZOLE SODIUM
     Indication: PRODUCT USED FOR UNKNOWN INDICATION
     Route: 065
  8. LISINOPRIL. [Concomitant]
     Active Substance: LISINOPRIL
     Route: 065
     Dates: start: 2000
  9. TOREM [Concomitant]
     Active Substance: TORSEMIDE
     Dosage: 1 TABLET DAILY
     Route: 065
     Dates: start: 201107

REACTIONS (1)
  - Toxic epidermal necrolysis [Fatal]

NARRATIVE: CASE EVENT DATE: 20111019
